FAERS Safety Report 10184733 (Version 6)
Quarter: 2017Q2

REPORT INFORMATION
  Report Type: Report from Study
  Country: JP (occurrence: JP)
  Receive Date: 20140521
  Receipt Date: 20170525
  Transmission Date: 20170829
  Serious: Yes (Hospitalization, Other)
  Sender: FDA-Public Use
  Company Number: JP-ROCHE-1400909

PATIENT
  Age: 58 Year
  Sex: Male
  Weight: 64 kg

DRUGS (43)
  1. DORNER [Concomitant]
     Active Substance: BERAPROST SODIUM
     Route: 048
  2. ARTIST [Concomitant]
     Active Substance: CARVEDILOL
     Route: 048
  3. TAKEPRON [Concomitant]
     Active Substance: LANSOPRAZOLE
     Dosage: DOSAGE IS UNCERTAIN.
     Route: 048
  4. FESIN (JAPAN) [Concomitant]
     Active Substance: IRON SUCROSE
     Dosage: DOSAGE IS UNCERTAIN.
     Route: 065
  5. CELECOX [Concomitant]
     Active Substance: CELECOXIB
     Route: 048
  6. POLARAMINE [Concomitant]
     Active Substance: DEXCHLORPHENIRAMINE MALEATE
     Route: 048
  7. LIPACREON [Concomitant]
     Active Substance: PANCRELIPASE
     Route: 048
  8. RENIVACE [Concomitant]
     Active Substance: ENALAPRIL
     Dosage: EVENING
     Route: 048
  9. CEFCAPENE PIVOXIL HYDROCHLORIDE [Concomitant]
     Active Substance: CEFCAPENE PIVOXIL HYDROCHLORIDE
     Dosage: DOSAGE IS UNCERTAIN.
     Route: 065
  10. FRANDOL [Concomitant]
     Active Substance: ISOSORBIDE DINITRATE
     Dosage: DOSAGE IS UNCERTAIN.
     Route: 062
  11. LYRICA [Concomitant]
     Active Substance: PREGABALIN
     Route: 065
  12. CALONAL [Concomitant]
     Active Substance: ACETAMINOPHEN
     Route: 048
  13. LENDORMIN D [Concomitant]
     Active Substance: BROTIZOLAM
     Route: 048
  14. MS ONSHIPPU [Concomitant]
     Active Substance: CAMPHOR\CAPSICUM\METHYL SALICYLATE
     Dosage: DOSAGE IS UNCERTAIN.
     Route: 062
  15. METHOXY POLYETHYLENE GLYCOL-EPOETIN BETA [Suspect]
     Active Substance: METHOXY POLYETHYLENE GLYCOL-EPOETIN BETA
     Indication: NEPHROGENIC ANAEMIA
     Route: 042
     Dates: start: 20140203, end: 2014
  16. FOIPAN [Concomitant]
     Active Substance: CAMOSTAT MESYLATE
     Route: 048
  17. AMLODIPINE [Concomitant]
     Active Substance: AMLODIPINE BESYLATE
     Dosage: MORNING
     Route: 048
  18. CRAVIT [Concomitant]
     Active Substance: LEVOFLOXACIN
     Dosage: DOSAGE IS UNCERTAIN.
     Route: 065
  19. REBAMIPIDE [Concomitant]
     Active Substance: REBAMIPIDE
     Route: 065
  20. METHOXY POLYETHYLENE GLYCOL-EPOETIN BETA [Suspect]
     Active Substance: METHOXY POLYETHYLENE GLYCOL-EPOETIN BETA
     Indication: NEPHROGENIC ANAEMIA
     Route: 042
     Dates: start: 20160126, end: 20160225
  21. NEXIUM [Concomitant]
     Active Substance: ESOMEPRAZOLE MAGNESIUM
     Dosage: BEFORE IT KNEADS
     Route: 048
  22. BISOLVON [Concomitant]
     Active Substance: BROMHEXINE HYDROCHLORIDE
     Route: 048
  23. ALLOID G [Concomitant]
     Active Substance: SODIUM ALGINATE
     Route: 065
  24. ARCRANE [Concomitant]
     Route: 048
  25. MUCOSTA [Concomitant]
     Active Substance: REBAMIPIDE
     Dosage: DOSAGE IS UNCERTAIN.
     Route: 065
  26. METHOXY POLYETHYLENE GLYCOL-EPOETIN BETA [Suspect]
     Active Substance: METHOXY POLYETHYLENE GLYCOL-EPOETIN BETA
     Indication: NEPHROGENIC ANAEMIA
     Dosage: DOSAGE IS UNCERTAIN.
     Route: 042
     Dates: start: 20140513
  27. POLARAMINE [Concomitant]
     Active Substance: DEXCHLORPHENIRAMINE MALEATE
     Route: 048
  28. ALLOID G [Concomitant]
     Active Substance: SODIUM ALGINATE
     Route: 065
  29. LOXONIN [Concomitant]
     Active Substance: LOXOPROFEN SODIUM
     Dosage: DOSAGE IS UNCERTAIN.
     Route: 065
  30. AMITIZA [Concomitant]
     Active Substance: LUBIPROSTONE
     Route: 048
  31. OXAROL [Concomitant]
     Active Substance: MAXACALCITOL
     Dosage: (MONDAY)
     Route: 042
     Dates: start: 20131216
  32. FOSRENOL [Concomitant]
     Active Substance: LANTHANUM CARBONATE
     Route: 048
  33. FOSRENOL [Concomitant]
     Active Substance: LANTHANUM CARBONATE
     Route: 048
  34. ARTIST [Concomitant]
     Active Substance: CARVEDILOL
     Dosage: MORNING
     Route: 048
  35. WARFARIN [Concomitant]
     Active Substance: WARFARIN
     Dosage: HD DAY: 1.5MG NON-HD DAY: 2MG
     Route: 048
  36. LOXONIN [Concomitant]
     Active Substance: LOXOPROFEN SODIUM
     Dosage: DOSAGE IS UNCERTAIN.
     Route: 062
  37. REGPARA [Concomitant]
     Active Substance: CINACALCET HYDROCHLORIDE
     Dosage: MORNING?DRUG REPORTED AS REGPARA
     Route: 048
  38. METHOXY POLYETHYLENE GLYCOL-EPOETIN BETA [Suspect]
     Active Substance: METHOXY POLYETHYLENE GLYCOL-EPOETIN BETA
     Indication: NEPHROGENIC ANAEMIA
     Route: 042
     Dates: start: 20150609, end: 20151020
  39. MARZULENE [Concomitant]
     Active Substance: SODIUM GUALENATE
     Route: 048
  40. METHYCOBAL [Concomitant]
     Active Substance: METHYLCOBALAMIN
     Dosage: DOSAGE IS UNCERTAIN.
     Route: 065
  41. MONILAC [Concomitant]
     Active Substance: LACTULOSE
     Dosage: SYRUP
     Route: 048
  42. LOXONIN [Concomitant]
     Active Substance: LOXOPROFEN SODIUM
     Dosage: DOSAGE IS UNCERTAIN.
     Route: 062
  43. TSUMURA GOREISAN EXTRACT GRANULES [Concomitant]
     Route: 048

REACTIONS (13)
  - Haematemesis [Recovering/Resolving]
  - Shock [Unknown]
  - Device related infection [Recovering/Resolving]
  - Anaemia [Unknown]
  - Gastrooesophageal reflux disease [Recovering/Resolving]
  - Melaena [Unknown]
  - Gastric ulcer haemorrhage [Recovering/Resolving]
  - Intervertebral discitis [Unknown]
  - Gastric ulcer [Recovering/Resolving]
  - Femoral neck fracture [Recovering/Resolving]
  - Fall [Unknown]
  - Gastric ulcer [Unknown]
  - Gastrointestinal haemorrhage [Recovering/Resolving]

NARRATIVE: CASE EVENT DATE: 20140423
